FAERS Safety Report 13573677 (Version 1)
Quarter: 2017Q2

REPORT INFORMATION
  Report Type: Spontaneous
  Country: US (occurrence: US)
  Receive Date: 20170523
  Receipt Date: 20170523
  Transmission Date: 20170830
  Serious: Yes (Hospitalization)
  Sender: FDA-Public Use
  Company Number: US-B.I. PHARMACEUTICALS,INC./RIDGEFIELD-2017-BI-027753

PATIENT
  Sex: Female
  Weight: 104.69 kg

DRUGS (1)
  1. PRADAXA [Suspect]
     Active Substance: DABIGATRAN ETEXILATE MESYLATE
     Indication: ATRIAL FIBRILLATION
     Route: 065

REACTIONS (6)
  - Cryoglobulinaemia [Unknown]
  - Haematochezia [Unknown]
  - Anaemia [Recovering/Resolving]
  - Haematuria [Unknown]
  - Lower gastrointestinal haemorrhage [Recovering/Resolving]
  - Cystitis haemorrhagic [Recovered/Resolved]
